FAERS Safety Report 9851656 (Version 1)
Quarter: 2014Q1

REPORT INFORMATION
  Report Type: Spontaneous
  Country: FR (occurrence: FR)
  Receive Date: 20140129
  Receipt Date: 20140129
  Transmission Date: 20141002
  Serious: Yes (Hospitalization)
  Sender: FDA-Public Use
  Company Number: FR-ROCHE-1337504

PATIENT
  Age: 87 Year
  Sex: Female

DRUGS (2)
  1. HERCEPTIN [Suspect]
     Indication: BREAST CANCER METASTATIC
     Dosage: POWDER FOR DRIP SOLUTION
     Route: 042
     Dates: start: 20131224, end: 20131224
  2. PERJETA [Suspect]
     Indication: BREAST CANCER METASTATIC
     Dosage: 420MG ?DRIP SOLUTION
     Route: 042
     Dates: start: 20131224, end: 20131224

REACTIONS (3)
  - Rash [Recovered/Resolved]
  - Tremor [Recovered/Resolved]
  - Dyspnoea [Recovered/Resolved]
